FAERS Safety Report 7906139-8 (Version None)
Quarter: 2011Q4

REPORT INFORMATION
  Report Type: 
  Country: None (occurrence: None)
  Receive Date: 20111110
  Receipt Date: 20111102
  Transmission Date: 20120403
  Serious: Yes (Other)
  Sender: FDA-Public Use
  Company Number: US-AMGEN-USASP2011055542

PATIENT
  Age: 3 Year
  Sex: Male
  Weight: 14.4 kg

DRUGS (12)
  1. NORVASC [Concomitant]
  2. PRILOSEC [Concomitant]
  3. ERGOCALCIFEROL [Concomitant]
  4. ENALAPRIL MALEATE [Concomitant]
  5. EPOGEN [Suspect]
     Dosage: 3000 IU, 3 TIMES/WK
     Route: 058
     Dates: start: 20110812
  6. CLONIDINE [Concomitant]
  7. FERROUS SULFATE TAB [Concomitant]
  8. NEPHROVITE [Concomitant]
  9. EPOGEN [Suspect]
     Dosage: 2400 IU, 2 TIMES/WK
     Route: 058
     Dates: start: 20101001
  10. CALCITRIOL [Concomitant]
  11. CALCIUM CARBONATE [Concomitant]
  12. EPOGEN [Suspect]
     Indication: DIALYSIS
     Dosage: 10000 IU, 5 TIMES/WK
     Route: 058
     Dates: start: 20111018

REACTIONS (5)
  - APLASIA PURE RED CELL [None]
  - RETICULOCYTE COUNT ABNORMAL [None]
  - HAEMATOCRIT DECREASED [None]
  - BLOOD ERYTHROPOIETIN DECREASED [None]
  - HAEMOGLOBIN DECREASED [None]
